FAERS Safety Report 10262062 (Version 1)
Quarter: 2014Q2

REPORT INFORMATION
  Report Type: Spontaneous
  Country: US (occurrence: None)
  Receive Date: 20140624
  Receipt Date: 20140624
  Transmission Date: 20141212
  Serious: Yes (Hospitalization)
  Sender: FDA-Public Use
  Company Number: None

PATIENT
  Age: 69 Year
  Sex: Male

DRUGS (1)
  1. MIDOSTAURIN [Suspect]
     Indication: SYSTEMIC MASTOCYTOSIS
     Dosage: THERAPY?START MIDOSTAURIN 4/15/10?HELD 3-4-14-} 5/13/14?RESTART 5/14/14-}5/22/14?HELD SINCE 5/23/14
     Route: 048
     Dates: start: 20100415

REACTIONS (1)
  - Diarrhoea haemorrhagic [None]
